FAERS Safety Report 17130183 (Version 1)
Quarter: 2019Q4

REPORT INFORMATION
  Report Type: Spontaneous
  Country: None (occurrence: US)
  Receive Date: 20191209
  Receipt Date: 20191209
  Transmission Date: 20200122
  Serious: No
  Sender: FDA-Public Use
  Company Number: US-AKRON, INC.-2077623

PATIENT
  Sex: Female

DRUGS (1)
  1. KETOROLAC TROMETHAMINE 0.5% [Suspect]
     Active Substance: KETOROLAC TROMETHAMINE
     Route: 047

REACTIONS (4)
  - Eye irritation [Unknown]
  - Drug ineffective [Unknown]
  - Lacrimation increased [Unknown]
  - Dyspnoea [Unknown]
